FAERS Safety Report 4832811-2 (Version None)
Quarter: 2005Q4

REPORT INFORMATION
  Report Type: 
  Country: None (occurrence: None)
  Receive Date: 20051117
  Receipt Date: 20051102
  Transmission Date: 20060501
  Serious: Yes (Hospitalization, Other)
  Sender: FDA-Public Use
  Company Number: USA0511112604

PATIENT
  Sex: Female

DRUGS (7)
  1. EVISTA [Suspect]
     Indication: CALCIUM METABOLISM DISORDER
     Dates: start: 20030101
  2. FORTEO [Suspect]
     Indication: OSTEOPOROSIS
     Dates: start: 20050823
  3. HYDROCODONE [Concomitant]
  4. EFFEXOR [Concomitant]
  5. SYNTHROID [Concomitant]
  6. FOSAMAX [Concomitant]
  7. MIACALCIN [Concomitant]

REACTIONS (17)
  - BACK PAIN [None]
  - CONDITION AGGRAVATED [None]
  - CONSTIPATION [None]
  - DIZZINESS [None]
  - DRUG DOSE OMISSION [None]
  - FEELING ABNORMAL [None]
  - GASTRIC DISORDER [None]
  - MUSCLE SPASMS [None]
  - NASOPHARYNGEAL DISORDER [None]
  - NECK PAIN [None]
  - OESOPHAGEAL DISORDER [None]
  - PAIN IN EXTREMITY [None]
  - PHARMACEUTICAL PRODUCT COMPLAINT [None]
  - SINUS DISORDER [None]
  - THROMBOSIS [None]
  - TREATMENT NONCOMPLIANCE [None]
  - VOMITING [None]
